FAERS Safety Report 9186099 (Version 1)
Quarter: 2013Q1

REPORT INFORMATION
  Report Type: Spontaneous
  Country: US (occurrence: US)
  Receive Date: 20130325
  Receipt Date: 20130325
  Transmission Date: 20140127
  Serious: Yes (Disabling)
  Sender: FDA-Public Use
  Company Number: US-ASTELLAS-2013US001932

PATIENT
  Age: 66 Year
  Sex: Female
  Weight: 128 kg

DRUGS (2)
  1. VESICARE [Suspect]
     Indication: HYPERTONIC BLADDER
     Dosage: 10 MG, UID/QD
     Route: 048
     Dates: start: 20130205
  2. UNSPECIFIED MEDICATION [Concomitant]
     Indication: GLAUCOMA
     Dosage: UNK
     Route: 047

REACTIONS (3)
  - Malaise [Unknown]
  - Diarrhoea [Unknown]
  - Constipation [Unknown]
